FAERS Safety Report 5342133-1 (Version None)
Quarter: 2007Q2

REPORT INFORMATION
  Report Type: 
  Country: None (occurrence: None)
  Receive Date: 20070601
  Receipt Date: 20070524
  Transmission Date: 20071010
  Serious: Yes (Other)
  Sender: FDA-Public Use
  Company Number: US-PURDUE-USA_2007_0027389

PATIENT
  Age: 57 Year
  Sex: Female

DRUGS (6)
  1. OXYCONTIN [Suspect]
     Indication: DRUG USE FOR UNKNOWN INDICATION
     Dosage: 20 MG, SEE TEXT
  2. BIEST [Concomitant]
     Indication: HORMONE REPLACEMENT THERAPY
     Dosage: UNK, UNK
  3. LYRICA [Concomitant]
     Indication: NEURALGIA
     Dosage: UNK, UNK
  4. SINGULAIR [Concomitant]
     Indication: ASTHMA
     Dosage: UNK, UNK
  5. VOSPIRE [Concomitant]
     Indication: ASTHMA
     Dosage: UNK, UNK
  6. FLOVENT [Concomitant]
     Indication: ASTHMA
     Dosage: UNK, UNK

REACTIONS (8)
  - ANXIETY [None]
  - DEPRESSION [None]
  - DRUG WITHDRAWAL SYNDROME [None]
  - INSOMNIA [None]
  - SCREAMING [None]
  - SUICIDAL IDEATION [None]
  - TOOTH LOSS [None]
  - TREMOR [None]
